FAERS Safety Report 8474583-9 (Version None)
Quarter: 2012Q2

REPORT INFORMATION
  Report Type: 
  Country: None (occurrence: None)
  Receive Date: 20120628
  Receipt Date: 20120619
  Transmission Date: 20120825
  Serious: Yes (Other)
  Sender: FDA-Public Use
  Company Number: CA-JNJFOC-20120611412

PATIENT

DRUGS (7)
  1. DEXAMETHASONE [Suspect]
     Dosage: INDUCTION THERAPY
     Route: 065
  2. PREDNISONE TAB [Suspect]
     Indication: MULTIPLE MYELOMA
     Dosage: POST INDUCTION THERAPY; OF A 28-DAY CYCLE
     Route: 065
  3. CYCLOPHOSPHAMIDE [Suspect]
     Indication: MULTIPLE MYELOMA
     Dosage: POST INDUCTION THERAPY; DAYS 1, 8, 15, 22
     Route: 048
  4. DOXORUBICIN HCL [Suspect]
     Indication: MULTIPLE MYELOMA
     Dosage: INDUCTION THERAPY
     Route: 042
  5. BORTEZOMIB [Suspect]
     Indication: MULTIPLE MYELOMA
     Dosage: POST-INDUCTION THERAPY, DAYS 1, 8, 15
     Route: 065
  6. DEXAMETHASONE [Suspect]
     Indication: MULTIPLE MYELOMA
     Dosage: MAINTAINANCE THERAPY
     Route: 065
  7. BORTEZOMIB [Suspect]
     Dosage: INDUCTION THERAPY
     Route: 065

REACTIONS (5)
  - ADVERSE DRUG REACTION [None]
  - MULTIPLE MYELOMA [None]
  - THROMBOCYTOPENIA [None]
  - NEUROPATHY PERIPHERAL [None]
  - NEUTROPENIA [None]
